FAERS Safety Report 10020857 (Version 2)
Quarter: 2014Q1

REPORT INFORMATION
  Report Type: Spontaneous
  Country: US (occurrence: None)
  Receive Date: 20140313
  Receipt Date: 20140318
  Transmission Date: 20141002
  Serious: Yes (Other)
  Sender: FDA-Public Use
  Company Number: AUR-APL-2014-02676

PATIENT
  Age: 43 Year
  Sex: Male

DRUGS (1)
  1. QUETIAPINE [Suspect]
     Indication: SCHIZOAFFECTIVE DISORDER
     Dosage: 100 MG EVERY MORNING AND 200 MG EVERY EVENING, ORAL
     Route: 048

REACTIONS (5)
  - Painful erection [None]
  - Erection increased [None]
  - Treatment noncompliance [None]
  - Drug ineffective [None]
  - Wrong drug administered [None]
